FAERS Safety Report 5689115-8 (Version None)
Quarter: 2008Q1

REPORT INFORMATION
  Report Type: 
  Country: None (occurrence: None)
  Receive Date: 20080331
  Receipt Date: 19810908
  Transmission Date: 20080703
  Serious: Yes (Death, Other)
  Sender: FDA-Public Use
  Company Number: DE-ROCHE-810309397001

PATIENT
  Age: 37 Year
  Sex: Male
  Weight: 85 kg

DRUGS (6)
  1. VALIUM [Suspect]
     Indication: AGITATION
     Route: 050
     Dates: start: 19810817, end: 19810818
  2. ROHYPNOL [Suspect]
     Indication: DRUG USE FOR UNKNOWN INDICATION
     Route: 048
     Dates: start: 19810815, end: 19810815
  3. NEUROCIL [Concomitant]
     Route: 048
     Dates: start: 19810814, end: 19810817
  4. NEUROCIL [Concomitant]
     Dosage: 600 TO 700 MG A DAY
     Route: 048
     Dates: start: 19800131, end: 19800724
  5. HALDOL [Concomitant]
     Route: 048
     Dates: start: 19810814, end: 19810818
  6. HALDOL [Concomitant]
     Route: 048
     Dates: start: 19800131, end: 19800724

REACTIONS (4)
  - BRONCHITIS [None]
  - COR PULMONALE [None]
  - DEATH [None]
  - SOMNOLENCE [None]
